FAERS Safety Report 5505425-9 (Version None)
Quarter: 2007Q4

REPORT INFORMATION
  Report Type: 
  Country: None (occurrence: None)
  Receive Date: 20071102
  Receipt Date: 20071016
  Transmission Date: 20080405
  Serious: No
  Sender: FDA-Public Use
  Company Number: US-BAYER-200713029BCC

PATIENT
  Sex: Male
  Weight: 78 kg

DRUGS (3)
  1. ASPIRIN [Suspect]
     Indication: ANGIOPLASTY
     Dosage: TOTAL DAILY DOSE: 81 MG  UNIT DOSE: 81 MG
     Route: 048
  2. CADUET [Concomitant]
     Indication: BLOOD PRESSURE INCREASED
     Route: 048
  3. CLOBETASOL PROPIONATE [Concomitant]
     Indication: PSORIASIS
     Route: 061

REACTIONS (2)
  - CONTUSION [None]
  - HAEMORRHAGIC DIATHESIS [None]
